FAERS Safety Report 20723254 (Version 1)
Quarter: 2022Q2

REPORT INFORMATION
  Report Type: Spontaneous
  Country: GB (occurrence: GB)
  Receive Date: 20220419
  Receipt Date: 20220419
  Transmission Date: 20220721
  Serious: Yes (Other)
  Sender: FDA-Public Use
  Company Number: GB-MHRA-VAC-202204051218177900-7PZTK

PATIENT
  Age: 66 Year
  Sex: Male

DRUGS (4)
  1. VENLAFAXINE [Suspect]
     Active Substance: VENLAFAXINE HYDROCHLORIDE
     Indication: Depressed mood
     Dosage: UNK
     Route: 065
     Dates: start: 20210630
  2. ASTRAZENECA COVID-19 VACCINE [Concomitant]
     Active Substance: AZD-1222
     Indication: COVID-19 immunisation
     Dosage: UNK
     Route: 065
     Dates: start: 20210210, end: 20210210
  3. ASTRAZENECA COVID-19 VACCINE [Concomitant]
     Active Substance: AZD-1222
     Dosage: UNK
     Dates: start: 20210421, end: 20210421
  4. MIRTAZAPINE [Concomitant]
     Active Substance: MIRTAZAPINE
     Indication: Insomnia
     Dosage: 15 MILLIGRAM
     Route: 065
     Dates: start: 20220307

REACTIONS (14)
  - Dizziness [Unknown]
  - Nausea [Unknown]
  - Somnolence [Unknown]
  - Hyperhidrosis [Unknown]
  - Night sweats [Unknown]
  - Chills [Unknown]
  - Dry mouth [Unknown]
  - Decreased appetite [Unknown]
  - Erectile dysfunction [Unknown]
  - Diarrhoea [Unknown]
  - Headache [Unknown]
  - Vision blurred [Recovered/Resolved]
  - Tinnitus [Not Recovered/Not Resolved]
  - Condition aggravated [Unknown]
